FAERS Safety Report 7825852-4 (Version None)
Quarter: 2011Q4

REPORT INFORMATION
  Report Type: 
  Country: None (occurrence: None)
  Receive Date: 20111019
  Receipt Date: 20110922
  Transmission Date: 20120403
  Serious: Yes (Hospitalization)
  Sender: FDA-Public Use
  Company Number: CH-BAYER-2011-089117

PATIENT
  Age: 80 Year
  Sex: Female

DRUGS (5)
  1. FLUOXETINE HCL [Suspect]
     Dosage: 10 MG, QD
  2. RAMIPRIL [Concomitant]
     Dosage: 2.5 MG, BID
     Route: 048
  3. TILUR [Suspect]
     Dosage: 90 MG, QD
     Route: 048
     Dates: start: 20010115, end: 20110313
  4. ASPIRIN [Suspect]
     Dosage: 100 MG, QID
     Route: 048
  5. PLAVIX [Suspect]
     Dosage: 75 MG, QD
     Route: 048
     Dates: end: 20110313

REACTIONS (3)
  - HAEMORRHAGIC ANAEMIA [None]
  - GASTROINTESTINAL HAEMORRHAGE [None]
  - HAEMATEMESIS [None]
